FAERS Safety Report 10136876 (Version 1)
Quarter: 2014Q2

REPORT INFORMATION
  Report Type: Report from Study
  Country: US (occurrence: US)
  Receive Date: 20140429
  Receipt Date: 20140429
  Transmission Date: 20141212
  Serious: Yes (Hospitalization, Other)
  Sender: FDA-Public Use
  Company Number: US-ASTELLAS-2014US004212

PATIENT
  Sex: Female

DRUGS (1)
  1. ERLOTINIB [Suspect]
     Indication: PRODUCT USED FOR UNKNOWN INDICATION
     Dosage: UNK, UNKNOWN FREQ.
     Route: 065

REACTIONS (4)
  - Acetabulum fracture [Unknown]
  - Fall [Unknown]
  - Muscular weakness [Unknown]
  - Rash [Unknown]
